FAERS Safety Report 16484354 (Version 1)
Quarter: 2019Q3

REPORT INFORMATION
  Report Type: Spontaneous
  Country: US (occurrence: US)
  Receive Date: 20190625
  Receipt Date: 20190625
  Transmission Date: 20191004
  Serious: Yes (Hospitalization)
  Sender: FDA-Public Use
  Company Number: None

PATIENT
  Age: 33 Year
  Sex: Female
  Weight: 118 kg

DRUGS (6)
  1. ERENUMAB-AOEE [Suspect]
     Active Substance: ERENUMAB-AOOE
     Indication: MIGRAINE
     Dosage: ?          OTHER FREQUENCY:MONTHLY;?
     Route: 058
  2. ZOLMITRIPTAN. [Concomitant]
     Active Substance: ZOLMITRIPTAN
  3. CITALOPRAM [Concomitant]
     Active Substance: CITALOPRAM HYDROBROMIDE
  4. VITAMIN E [Concomitant]
     Active Substance: .ALPHA.-TOCOPHEROL
  5. LEVOTHYROXINE. [Concomitant]
     Active Substance: LEVOTHYROXINE
  6. ALBUTEROL. [Concomitant]
     Active Substance: ALBUTEROL

REACTIONS (2)
  - Mesenteric vein thrombosis [None]
  - Portal vein thrombosis [None]

NARRATIVE: CASE EVENT DATE: 20190326
